FAERS Safety Report 6139134-2 (Version None)
Quarter: 2009Q2

REPORT INFORMATION
  Report Type: 
  Country: None (occurrence: None)
  Receive Date: 20090401
  Receipt Date: 20090323
  Transmission Date: 20091009
  Serious: Yes (Other)
  Sender: FDA-Public Use
  Company Number: JP-PFIZER INC-2009189495

PATIENT

DRUGS (7)
  1. MIGLITOL [Suspect]
     Indication: DIABETES MELLITUS
     Dosage: 75 MG, UNK
     Route: 048
     Dates: start: 20090216, end: 20090305
  2. NIFEDIPINE [Suspect]
     Dosage: 20 MG, UNK
     Route: 048
  3. LANSOPRAZOLE [Suspect]
     Dosage: 15 MG, UNK
     Route: 048
  4. CARNACULIN [Suspect]
     Dosage: 50 IU, UNK
     Route: 048
  5. MECOBALAMIN [Concomitant]
     Dosage: 1500 UG, UNK
     Route: 048
  6. OLMETEC [Concomitant]
     Dosage: 20 MG, UNK
     Route: 048
  7. CILOSTAZOL [Concomitant]
     Dosage: 200 MG, UNK
     Route: 048

REACTIONS (2)
  - ILEUS [None]
  - INTESTINAL ISCHAEMIA [None]
